FAERS Safety Report 5706773-X (Version None)
Quarter: 2008Q2

REPORT INFORMATION
  Report Type: 
  Country: None (occurrence: None)
  Receive Date: 20080415
  Receipt Date: 20080415
  Transmission Date: 20081010
  Serious: Yes (Hospitalization)
  Sender: FDA-Public Use
  Company Number: None

PATIENT
  Sex: Male
  Weight: 88.63 kg

DRUGS (2)
  1. TEMOZOLOMIDE [Suspect]
     Dosage: 1500 MG
  2. IV CONTRAST (GADOLINIUM) [Concomitant]

REACTIONS (5)
  - HYPERSENSITIVITY [None]
  - PRURITUS [None]
  - RASH MACULO-PAPULAR [None]
  - SUBDURAL HYGROMA [None]
  - SWELLING FACE [None]
